FAERS Safety Report 9837048 (Version 2)
Quarter: 2014Q2

REPORT INFORMATION
  Report Type: Spontaneous
  Country: US (occurrence: None)
  Receive Date: 20131205
  Receipt Date: 20140416
  Transmission Date: 20141212
  Serious: No
  Sender: FDA-Public Use
  Company Number: 163-POMAL-13083362

PATIENT
  Age: 69 Year
  Sex: Male

DRUGS (5)
  1. POMALYST [Suspect]
     Indication: PLASMA CELL MYELOMA
     Dosage: 4 MG, 1 IN 1 D, PO?
     Route: 048
     Dates: start: 20130421, end: 20130725
  2. LISINOPRIL (LISINOPRIL) [Concomitant]
  3. SIMVASTATIN (SIMVASTATIN) [Concomitant]
  4. OMEPRAZOLE (OMEPRAZOLE) [Concomitant]
  5. GLIPIZIDE (GLIPIZIDE) [Concomitant]

REACTIONS (3)
  - Somnolence [None]
  - Oedema peripheral [None]
  - Plasma cell myeloma [None]
